FAERS Safety Report 7956396-7 (Version None)
Quarter: 2011Q4

REPORT INFORMATION
  Report Type: 
  Country: None (occurrence: None)
  Receive Date: 20111205
  Receipt Date: 20111130
  Transmission Date: 20120403
  Serious: Yes (Other)
  Sender: FDA-Public Use
  Company Number: BE-PFIZER INC-2011293968

PATIENT
  Sex: Male

DRUGS (2)
  1. LYRICA [Suspect]
     Dosage: 300MG
     Route: 048
  2. LYRICA [Suspect]
     Dosage: 4200MG DAILY
     Route: 048

REACTIONS (1)
  - DRUG DEPENDENCE [None]
